FAERS Safety Report 8197807-4 (Version None)
Quarter: 2012Q1

REPORT INFORMATION
  Report Type: 
  Country: None (occurrence: None)
  Receive Date: 20120309
  Receipt Date: 20120301
  Transmission Date: 20120608
  Serious: Yes (Hospitalization)
  Sender: FDA-Public Use
  Company Number: US-BAYER-2011-093499

PATIENT
  Age: 35 Year
  Sex: Female
  Weight: 81.633 kg

DRUGS (1)
  1. YASMIN [Suspect]
     Dosage: UNK
     Dates: start: 20061201, end: 20070501

REACTIONS (9)
  - INJURY [None]
  - PULMONARY HYPERTENSION [None]
  - PAIN [None]
  - CHEST DISCOMFORT [None]
  - MUSCLE SPASMS [None]
  - PULMONARY EMBOLISM [None]
  - ANXIETY [None]
  - EMOTIONAL DISTRESS [None]
  - DEEP VEIN THROMBOSIS [None]
